FAERS Safety Report 5302259-5 (Version None)
Quarter: 2007Q2

REPORT INFORMATION
  Report Type: 
  Country: None (occurrence: None)
  Receive Date: 20070419
  Receipt Date: 20060814
  Transmission Date: 20071010
  Serious: No
  Sender: FDA-Public Use
  Company Number: US-GLAXOSMITHKLINE-A0616544A

PATIENT
  Sex: Male

DRUGS (5)
  1. ESKALITH [Suspect]
     Dosage: 450MG TWICE PER DAY
     Route: 048
     Dates: start: 20060501, end: 20060622
  2. WELLBUTRIN [Concomitant]
  3. SYNTHROID [Concomitant]
  4. LOXAPINE [Concomitant]
  5. KLONOPIN [Concomitant]

REACTIONS (1)
  - NAUSEA [None]
